FAERS Safety Report 7217641-9 (Version None)
Quarter: 2011Q1

REPORT INFORMATION
  Report Type: 
  Country: None (occurrence: None)
  Receive Date: 20110110
  Receipt Date: 20101228
  Transmission Date: 20110831
  Serious: Yes (Hospitalization)
  Sender: FDA-Public Use
  Company Number: JP-SHIRE-SPV1-2010-02059

PATIENT
  Age: 70 Year
  Sex: Male

DRUGS (12)
  1. OLMETEC [Concomitant]
     Indication: HYPERTENSION
     Dosage: 20 MG, UNKNOWN
     Route: 048
     Dates: start: 20080702
  2. ONEALFA [Concomitant]
     Indication: PRODUCT USED FOR UNKNOWN INDICATION
     Dosage: 0.5 ?G, UNKNOWN
     Route: 048
     Dates: start: 20080702
  3. ADALAT CC [Concomitant]
     Indication: PRODUCT USED FOR UNKNOWN INDICATION
     Dosage: 40 MG, UNKNOWN
     Route: 048
     Dates: start: 20080702
  4. CARDENALIN [Concomitant]
     Dosage: 2 MG, UNKNOWN
     Route: 048
  5. COVERSYL                           /00790702/ [Concomitant]
     Indication: HYPERTENSION
     Dosage: 4 MG, UNKNOWN
     Route: 048
     Dates: start: 20080702
  6. FOSRENOL [Suspect]
     Dosage: 750 MG, OTHER, TOTAL DAILY DOSE
     Route: 048
     Dates: start: 20091215, end: 20100308
  7. CALTAN [Concomitant]
     Indication: PRODUCT USED FOR UNKNOWN INDICATION
     Dosage: 05. ?G, UNKNOWN
     Route: 048
     Dates: start: 20080702
  8. ARGAMATE [Concomitant]
     Indication: BLOOD POTASSIUM INCREASED
     Dosage: 75 MG, UNKNOWN
     Route: 048
     Dates: start: 20080702
  9. FOSRENOL [Suspect]
     Indication: HYPERPHOSPHATAEMIA
     Dosage: 1500 MG, OTHER, TOTAL DAILY DOSE
     Route: 048
     Dates: start: 20100309, end: 20101012
  10. OLMETEC [Concomitant]
     Dosage: 40 MG, UNKNOWN
     Route: 048
  11. CARDENALIN [Concomitant]
     Indication: HYPERTENSION
     Dosage: 4 MG, UNKNOWN
     Route: 048
     Dates: start: 20080702
  12. METHYCOBAL [Concomitant]
     Indication: PRODUCT USED FOR UNKNOWN INDICATION
     Dosage: 1500 ?G, UNKNOWN
     Route: 048
     Dates: start: 20080702

REACTIONS (3)
  - HYPERTENSION [None]
  - NAUSEA [None]
  - VOMITING [None]
